FAERS Safety Report 8153308-0 (Version None)
Quarter: 2012Q1

REPORT INFORMATION
  Report Type: 
  Country: None (occurrence: None)
  Receive Date: 20120221
  Receipt Date: 20120208
  Transmission Date: 20120608
  Serious: Yes (Hospitalization)
  Sender: FDA-Public Use
  Company Number: US-ELI_LILLY_AND_COMPANY-US201201004345

PATIENT
  Age: 86 Year
  Sex: Female

DRUGS (4)
  1. REGLAN [Concomitant]
  2. ACIPHEX [Concomitant]
     Dosage: UNK
  3. ANTIHYPERTENSIVES [Concomitant]
     Indication: HYPERTENSION
  4. CYMBALTA [Suspect]
     Indication: BACK PAIN
     Dosage: 30 MG, QD
     Dates: end: 20111001

REACTIONS (7)
  - ANTICOAGULATION DRUG LEVEL BELOW THERAPEUTIC [None]
  - BILE DUCT STONE [None]
  - VOMITING [None]
  - MEDICAL DEVICE COMPLICATION [None]
  - NAUSEA [None]
  - MUSCLE SPASMS [None]
  - ABNORMAL DREAMS [None]
